FAERS Safety Report 6467025-6 (Version None)
Quarter: 2009Q4

REPORT INFORMATION
  Report Type: 
  Country: None (occurrence: None)
  Receive Date: 20091202
  Receipt Date: 20091120
  Transmission Date: 20100525
  Serious: Yes (Hospitalization)
  Sender: FDA-Public Use
  Company Number: FR-BAYER-200813764GPV

PATIENT
  Age: 34 Year
  Sex: Female

DRUGS (1)
  1. BETAFERON [Suspect]
     Indication: RELAPSING-REMITTING MULTIPLE SCLEROSIS
     Dosage: 250 MCG
     Route: 058
     Dates: start: 19960101

REACTIONS (1)
  - COLON CANCER [None]
